FAERS Safety Report 9001363 (Version 1)
Quarter: 2013Q1

REPORT INFORMATION
  Report Type: Spontaneous
  Country: US (occurrence: US)
  Receive Date: 20130107
  Receipt Date: 20130107
  Transmission Date: 20140127
  Serious: No
  Sender: FDA-Public Use
  Company Number: US-ASTELLAS-2012US004639

PATIENT
  Age: 79 Year
  Sex: Female

DRUGS (1)
  1. VAPRISOL [Suspect]
     Indication: PRODUCT USED FOR UNKNOWN INDICATION
     Dosage: UNK
     Route: 042
     Dates: start: 20120506

REACTIONS (2)
  - Injection site extravasation [Unknown]
  - Infusion site reaction [Unknown]
